FAERS Safety Report 8926672 (Version 1)
Quarter: 2012Q4

REPORT INFORMATION
  Report Type: 
  Country: US (occurrence: US)
  Receive Date: 20121127
  Receipt Date: 20121127
  Transmission Date: 20130627
  Serious: No
  Sender: FDA-Public Use
  Company Number: US-PFIZER INC-2012292460

PATIENT
  Age: 67 Year
  Sex: Male

DRUGS (2)
  1. NITROSTAT [Suspect]
     Indication: CHEST PAIN
     Dosage: UNK
     Dates: start: 1995
  2. NITROSTAT [Suspect]
     Indication: ANGINAL PAIN

REACTIONS (1)
  - Headache [Not Recovered/Not Resolved]
